FAERS Safety Report 18252095 (Version 1)
Quarter: 2020Q3

REPORT INFORMATION
  Report Type: Spontaneous
  Country: US (occurrence: US)
  Receive Date: 20200910
  Receipt Date: 20200910
  Transmission Date: 20201103
  Serious: No
  Sender: FDA-Public Use
  Company Number: US-FARMAPROD-202004-0486

PATIENT
  Sex: Female

DRUGS (2)
  1. OXERVATE [Suspect]
     Active Substance: CENEGERMIN-BKBJ
     Indication: NEUROTROPHIC KERATOPATHY
     Route: 047
  2. RHOPRESSA [Concomitant]
     Active Substance: NETARSUDIL MESYLATE

REACTIONS (7)
  - Foreign body sensation in eyes [Unknown]
  - Lacrimation increased [Unknown]
  - Facial pain [Unknown]
  - Eye pain [Unknown]
  - Eyelid thickening [Unknown]
  - Eye irritation [Unknown]
  - Ocular discomfort [Unknown]
